FAERS Safety Report 5109561-0 (Version None)
Quarter: 2006Q3

REPORT INFORMATION
  Report Type: 
  Country: None (occurrence: None)
  Receive Date: 20060918
  Receipt Date: 20060830
  Transmission Date: 20061208
  Serious: Yes (Hospitalization)
  Sender: FDA-Public Use
  Company Number: FR200608006744

PATIENT
  Age: 51 Year
  Sex: Female
  Weight: 95 kg

DRUGS (9)
  1. ALIMTA [Suspect]
     Indication: LUNG ADENOCARCINOMA
     Dosage: 500 MG/M2, OTHER, INTRAVENOUS
     Route: 042
     Dates: start: 20060705, end: 20060818
  2. FOLIC ACID [Concomitant]
  3. CYANOCOBALAMIN [Concomitant]
  4. ARANESP [Concomitant]
  5. EPREX [Concomitant]
  6. PREDNISONE TAB [Concomitant]
  7. MIRTAZAPINE [Concomitant]
  8. DEPAKOTE [Concomitant]
  9. ATARAX [Concomitant]

REACTIONS (6)
  - ALANINE AMINOTRANSFERASE [None]
  - ASPARTATE AMINOTRANSFERASE INCREASED [None]
  - PAPILLOEDEMA [None]
  - PARAESTHESIA [None]
  - PHOSPHENES [None]
  - VISION BLURRED [None]
